FAERS Safety Report 23401181 (Version 2)
Quarter: 2024Q1

REPORT INFORMATION
  Report Type: Spontaneous
  Country: CL (occurrence: None)
  Receive Date: 20240115
  Receipt Date: 20240119
  Transmission Date: 20240409
  Serious: Yes (Other)
  Sender: FDA-Public Use
  Company Number: 2024A009005

PATIENT
  Sex: Female
  Weight: 77 kg

DRUGS (4)
  1. XIGDUO XR [Suspect]
     Active Substance: DAPAGLIFLOZIN PROPANEDIOL\METFORMIN HYDROCHLORIDE
     Indication: Insulin resistance
     Route: 048
     Dates: start: 20231206, end: 20240105
  2. TRULICITY [Concomitant]
     Active Substance: DULAGLUTIDE
     Indication: Anxiety
  3. TRULICITY [Concomitant]
     Active Substance: DULAGLUTIDE
     Indication: Prophylaxis
  4. TRULICITY [Concomitant]
     Active Substance: DULAGLUTIDE
     Indication: Weight decreased

REACTIONS (4)
  - Dyspepsia [Recovered/Resolved]
  - Fatigue [Not Recovered/Not Resolved]
  - Abdominal pain upper [Recovered/Resolved]
  - Gastrooesophageal reflux disease [Recovered/Resolved]

NARRATIVE: CASE EVENT DATE: 20231206
